FAERS Safety Report 12863827 (Version 2)
Quarter: 2016Q4

REPORT INFORMATION
  Report Type: Spontaneous
  Country: US (occurrence: US)
  Receive Date: 20161019
  Receipt Date: 20161107
  Transmission Date: 20170207
  Serious: Yes (Other)
  Sender: FDA-Public Use
  Company Number: US-TEVA-703759USA

PATIENT
  Age: 81 Year
  Sex: Male

DRUGS (6)
  1. NORTHERA [Suspect]
     Active Substance: DROXIDOPA
     Indication: ORTHOSTATIC HYPOTENSION
     Dosage: 300 MILLIGRAM DAILY;
     Route: 048
     Dates: start: 20160912
  2. NORTHERA [Suspect]
     Active Substance: DROXIDOPA
     Dosage: 600 MILLIGRAM DAILY;
     Route: 048
     Dates: start: 20160905
  3. METOPROLOL. [Suspect]
     Active Substance: METOPROLOL
     Indication: PRODUCT USED FOR UNKNOWN INDICATION
     Route: 065
  4. NORTHERA [Suspect]
     Active Substance: DROXIDOPA
     Indication: PARKINSON^S DISEASE
     Dosage: 300 MILLIGRAM DAILY; TITRATION SCHEDULE B
     Route: 048
     Dates: start: 20160909
  5. AMIODARONE [Suspect]
     Active Substance: AMIODARONE
     Indication: PRODUCT USED FOR UNKNOWN INDICATION
     Route: 065
  6. NORTHERA [Suspect]
     Active Substance: DROXIDOPA
     Dosage: 300 MILLIGRAM DAILY;
     Route: 048
     Dates: start: 20160903, end: 20160904

REACTIONS (4)
  - Condition aggravated [Unknown]
  - Seizure like phenomena [Unknown]
  - Muscle rigidity [Unknown]
  - Adverse reaction [Unknown]

NARRATIVE: CASE EVENT DATE: 2016
